FAERS Safety Report 6081503-3 (Version None)
Quarter: 2009Q1

REPORT INFORMATION
  Report Type: 
  Country: None (occurrence: None)
  Receive Date: 20090213
  Receipt Date: 20090201
  Transmission Date: 20090719
  Serious: Yes (Hospitalization)
  Sender: FDA-Public Use
  Company Number: 2009S1001392

PATIENT
  Age: 64 Year
  Sex: Female
  Weight: 58.9676 kg

DRUGS (6)
  1. PHOSPHOSODA FLAVOR NOT SPECIFIED [Suspect]
     Indication: COLONOSCOPY
     Dosage: PO
     Route: 048
     Dates: start: 20050526, end: 20050526
  2. LISINOPRIL [Concomitant]
  3. CRESTOR [Concomitant]
  4. TOPROL-XL [Concomitant]
  5. AUGMENTIN [Concomitant]
  6. VALIUM [Concomitant]

REACTIONS (9)
  - ANAEMIA [None]
  - BLOOD POTASSIUM DECREASED [None]
  - BLOOD SODIUM DECREASED [None]
  - CHEST PAIN [None]
  - DIALYSIS [None]
  - NAUSEA [None]
  - RENAL FAILURE [None]
  - TROPONIN INCREASED [None]
  - VOMITING [None]
